FAERS Safety Report 22103230 (Version 2)
Quarter: 2023Q2

REPORT INFORMATION
  Report Type: Spontaneous
  Country: GB (occurrence: GB)
  Receive Date: 20230316
  Receipt Date: 20230406
  Transmission Date: 20230722
  Serious: Yes (Other)
  Sender: FDA-Public Use
  Company Number: None

PATIENT
  Sex: Female

DRUGS (1)
  1. TRANEXAMIC ACID [Suspect]
     Active Substance: TRANEXAMIC ACID
     Indication: Abnormal uterine bleeding
     Dosage: UNK
     Dates: start: 20200904

REACTIONS (2)
  - Cerebral venous sinus thrombosis [Unknown]
  - Headache [Unknown]
